FAERS Safety Report 6036028-8 (Version None)
Quarter: 2009Q1

REPORT INFORMATION
  Report Type: 
  Country: None (occurrence: None)
  Receive Date: 20090113
  Receipt Date: 20090108
  Transmission Date: 20090719
  Serious: Yes (Hospitalization)
  Sender: FDA-Public Use
  Company Number: BE-ABBOTT-08P-013-0474208-00

PATIENT
  Sex: Male

DRUGS (2)
  1. KALETRA [Suspect]
     Indication: DRUG USE FOR UNKNOWN INDICATION
     Dosage: 2 X 200MG/50MG, DAILY
     Dates: start: 20060905
  2. ABACAVIR SULFATE/LAMIVUDINE [Concomitant]
     Indication: DRUG USE FOR UNKNOWN INDICATION
     Dosage: 600/300MG, DAILY
     Dates: start: 20060905

REACTIONS (5)
  - FALL [None]
  - INTERVERTEBRAL DISC PROTRUSION [None]
  - LUMBAR VERTEBRAL FRACTURE [None]
  - MOBILITY DECREASED [None]
  - PAIN [None]
